FAERS Safety Report 8251168-0 (Version None)
Quarter: 2012Q2

REPORT INFORMATION
  Report Type: 
  Country: None (occurrence: None)
  Receive Date: 20120402
  Receipt Date: 20120322
  Transmission Date: 20120825
  Serious: Yes (Hospitalization)
  Sender: FDA-Public Use
  Company Number: CG-MERCK-1203USA03416

PATIENT
  Age: 8 Year
  Sex: Female
  Weight: 19 kg

DRUGS (1)
  1. STROMECTOL [Suspect]
     Indication: ONCHOCERCIASIS
     Route: 048
     Dates: start: 20110901

REACTIONS (11)
  - PERIPHERAL COLDNESS [None]
  - HYPOVOLAEMIC SHOCK [None]
  - PULSE ABNORMAL [None]
  - DIARRHOEA [None]
  - VOMITING [None]
  - HEART RATE ABNORMAL [None]
  - MALARIA [None]
  - ASTHENIA [None]
  - PYREXIA [None]
  - SLUGGISHNESS [None]
  - HEADACHE [None]
